FAERS Safety Report 9770627 (Version 3)
Quarter: 2014Q1

REPORT INFORMATION
  Report Type: Spontaneous
  Country: US (occurrence: US)
  Receive Date: 20131218
  Receipt Date: 20140204
  Transmission Date: 20141002
  Serious: Yes (Death, Hospitalization, Other)
  Sender: FDA-Public Use
  Company Number: US-009507513-1312USA006880

PATIENT
  Age: 37 Year
  Sex: Male
  Weight: 73.47 kg

DRUGS (17)
  1. TEMODAR [Suspect]
     Indication: MALIGNANT MELANOMA
     Dosage: 250 MG CAPSULE 1 - 5 EVERY 28 DAYS
     Route: 048
     Dates: start: 20131021, end: 20131122
  2. TEMODAR [Suspect]
     Dosage: 250 MG CAPSULE 1 - 5 EVERY 28 DAYS
     Route: 048
     Dates: start: 20131004
  3. TEMODAR [Suspect]
     Indication: MALIGNANT MELANOMA
     Dosage: 140 MG CAPSULE 1 - 5 EVERY 28 DAYS
     Route: 048
     Dates: start: 20131021, end: 20131122
  4. TEMODAR [Suspect]
     Dosage: 140 MG CAPSULE 1 - 5 EVERY 28 DAYS
     Route: 048
     Dates: start: 20131004
  5. CYMBALTA [Concomitant]
     Dosage: 20 MG, BID
     Route: 048
     Dates: start: 20131114
  6. DRONABINOL [Concomitant]
     Dosage: 2.5 MG, BID
     Route: 048
     Dates: start: 20131121
  7. FENTANYL [Concomitant]
     Dosage: 100 MCG/HR; 2 HOURS; APPLY 2-100 MCG PATCHES EVERY 72 HRS, TOTAL 200 MCG
     Dates: start: 20130919
  8. FUROSEMIDE [Concomitant]
     Dosage: 20 MG, PRN
     Route: 048
     Dates: start: 20131106
  9. HYDROMORPHONE HYDROCHLORIDE [Concomitant]
     Indication: PAIN
     Dosage: TAKE ONE TO TWO TABLETS EVERY 4 HOURS AS NEEDED
     Route: 048
     Dates: start: 20131114
  10. HYDROCHLOROTHIAZIDE (+) LISINOPRIL [Concomitant]
     Dosage: 20-25 MG TABLET, ONE TABLET, QD
     Route: 048
     Dates: start: 20131104
  11. ATIVAN [Concomitant]
     Dosage: 0.5 MG, EVERY 8 HOURS, PRN
     Route: 048
     Dates: start: 20130426
  12. LUNESTA [Concomitant]
     Dosage: 2 MG, HS
     Route: 048
     Dates: start: 20130919
  13. NEXIUM [Concomitant]
     Dosage: 20 MG, BID
     Route: 048
     Dates: start: 20130705
  14. ZOFRAN [Concomitant]
     Dosage: 8 MG, EVERY 8 HOURS, PRN
     Route: 048
     Dates: start: 20130711
  15. K-DUR [Concomitant]
     Dosage: TAKE ONE TABLET 20 MEQ, DAILY X3 DAYS, THEN AS NEEDED WITH FUROSEMIDE
     Route: 048
     Dates: start: 20131114
  16. PROCHLORPERAZINE MALEATE [Concomitant]
     Indication: NAUSEA
     Dosage: 10 MG, Q6H, PRN
     Dates: start: 20130503
  17. SENNA [Concomitant]
     Indication: NAUSEA
     Dosage: 8.6-50 MG, 1 DF DAILY, PRN
     Route: 048
     Dates: start: 20131107

REACTIONS (6)
  - Malignant melanoma [Fatal]
  - Metastases to lung [Fatal]
  - Metastases to central nervous system [Fatal]
  - Metastases to liver [Fatal]
  - Lethargy [Unknown]
  - Decreased appetite [Unknown]
